FAERS Safety Report 8378558-X (Version None)
Quarter: 2012Q2

REPORT INFORMATION
  Report Type: 
  Country: None (occurrence: None)
  Receive Date: 20120522
  Receipt Date: 20120511
  Transmission Date: 20120825
  Serious: Yes (Hospitalization, Other)
  Sender: FDA-Public Use
  Company Number: DE-ELI_LILLY_AND_COMPANY-DE201204008530

PATIENT
  Age: 66 Year
  Sex: Female

DRUGS (12)
  1. LEVEMIR [Concomitant]
     Dosage: 26 U, EACH MORNING
  2. NOVORAPID [Concomitant]
     Dosage: 18 U, TID
  3. TORSEMIDE [Concomitant]
  4. OMEPRAZOLE [Concomitant]
     Dosage: 20 MG, BID
  5. ENALAPRIL MALEATE [Concomitant]
     Dosage: 10 DF, BID
  6. SIMVASTATIN [Concomitant]
     Dosage: 40 MG, UNK
  7. BISOPROLOL FUMARATE [Concomitant]
     Dosage: 2.5 MG, QD
  8. METFORMIN HCL [Concomitant]
     Dosage: 1000 DF, BID
  9. LEVOTHYROXINE SODIUM [Concomitant]
     Dosage: 75 DF, QD
  10. BYDUREON [Suspect]
     Dosage: 2 MG, WEEKLY (1/W)
     Route: 058
     Dates: start: 20111001, end: 20120401
  11. LEVEMIR [Concomitant]
     Dosage: 30 U, EACH EVENING
  12. ASPIRIN [Concomitant]
     Dosage: 100 DF, QD

REACTIONS (3)
  - BLOOD GLUCOSE INCREASED [None]
  - OFF LABEL USE [None]
  - SALIVARY GLAND RESECTION [None]
